FAERS Safety Report 13285346 (Version 1)
Quarter: 2017Q1

REPORT INFORMATION
  Report Type: Spontaneous
  Country: US (occurrence: US)
  Receive Date: 20170301
  Receipt Date: 20170301
  Transmission Date: 20170428
  Serious: Yes (Hospitalization)
  Sender: FDA-Public Use
  Company Number: None

PATIENT
  Age: 55 Year
  Sex: Female
  Weight: 104.5 kg

DRUGS (2)
  1. CARBOPLATIN. [Suspect]
     Active Substance: CARBOPLATIN
     Indication: INVASIVE BREAST CARCINOMA
  2. DOCETAXEL. [Suspect]
     Active Substance: DOCETAXEL

REACTIONS (16)
  - Pain [None]
  - Leukopenia [None]
  - Nausea [None]
  - Pyrexia [None]
  - Sputum discoloured [None]
  - Diarrhoea [None]
  - Rash [None]
  - Shock [None]
  - Vomiting [None]
  - Burning sensation [None]
  - Productive cough [None]
  - Rhinorrhoea [None]
  - Blister [None]
  - Skin ulcer [None]
  - Decreased appetite [None]
  - Hypotension [None]

NARRATIVE: CASE EVENT DATE: 20160101
